FAERS Safety Report 8692862 (Version 2)
Quarter: 2012Q4

REPORT INFORMATION
  Report Type: 
  Country: US (occurrence: US)
  Receive Date: 20120730
  Receipt Date: 20121017
  Transmission Date: 20130627
  Serious: Yes (Hospitalization)
  Sender: FDA-Public Use
  Company Number: US-ELI_LILLY_AND_COMPANY-US201102003273

PATIENT
  Age: 55 Year
  Sex: Female

DRUGS (2)
  1. FORTEO [Suspect]
     Indication: OSTEOPOROSIS
     Dosage: 20 ug, qd
     Route: 065
     Dates: start: 201012
  2. FORTEO [Suspect]
     Dosage: 20 ug, qd
     Route: 065

REACTIONS (9)
  - Obesity [Unknown]
  - Blood parathyroid hormone increased [Not Recovered/Not Resolved]
  - Vitamin B12 increased [Unknown]
  - Pain in extremity [Recovering/Resolving]
  - Fatigue [Not Recovered/Not Resolved]
  - Drug dose omission [Recovered/Resolved]
  - Pain [Recovering/Resolving]
  - Injection site pain [Unknown]
  - Injection site bruising [Unknown]
